FAERS Safety Report 4851277-X (Version None)
Quarter: 2005Q4

REPORT INFORMATION
  Report Type: 
  Country: None (occurrence: None)
  Receive Date: 20051209
  Receipt Date: 20051125
  Transmission Date: 20060501
  Serious: Yes (Death)
  Sender: FDA-Public Use
  Company Number: 2005S1000253

PATIENT
  Age: 65 Year
  Sex: Male
  Weight: 162.84 kg

DRUGS (16)
  1. CUBICIN [Suspect]
     Indication: ABSCESS
     Dosage: 4 MG/KG; Q24H; IV
     Route: 042
     Dates: start: 20050714, end: 20050717
  2. CUBICIN [Suspect]
     Indication: CELLULITIS STAPHYLOCOCCAL
     Dosage: 4 MG/KG; Q24H; IV
     Route: 042
     Dates: start: 20050714, end: 20050717
  3. CUBICIN [Suspect]
     Indication: CELLULITIS STREPTOCOCCAL
     Dosage: 4 MG/KG; Q24H; IV
     Route: 042
     Dates: start: 20050714, end: 20050717
  4. MAXIPIME [Concomitant]
  5. CLINDAMYCIN [Concomitant]
  6. HEPARIN [Concomitant]
  7. PLAVIX [Concomitant]
  8. AMLODIPINE [Concomitant]
  9. LISINOPRIL [Concomitant]
  10. LOPRESSOR [Concomitant]
  11. NIASPAN [Concomitant]
  12. LOPID [Concomitant]
  13. FUROSEMIDE [Concomitant]
  14. RELAFEN [Concomitant]
  15. LORTAB [Concomitant]
  16. INSULIN [Concomitant]

REACTIONS (12)
  - ARTERIOSCLEROSIS CORONARY ARTERY [None]
  - CORONARY ARTERY STENOSIS [None]
  - HAEMODIALYSIS [None]
  - HYPOXIA [None]
  - METABOLIC ACIDOSIS [None]
  - MITRAL VALVE INCOMPETENCE [None]
  - MULTI-ORGAN FAILURE [None]
  - RENAL FAILURE ACUTE [None]
  - RESPIRATORY FAILURE [None]
  - RHABDOMYOLYSIS [None]
  - SEPSIS [None]
  - VENTRICULAR DYSFUNCTION [None]
